FAERS Safety Report 8537574-5 (Version None)
Quarter: 2012Q3

REPORT INFORMATION
  Report Type: 
  Country: None (occurrence: None)
  Receive Date: 20120725
  Receipt Date: 20120717
  Transmission Date: 20120928
  Serious: Yes (Other)
  Sender: FDA-Public Use
  Company Number: US-ASTRAZENECA-2012SE50277

PATIENT
  Age: 67 Year
  Sex: Male
  Weight: 103.4 kg

DRUGS (14)
  1. BENAZEPRIL HYDROCHLORIDE [Concomitant]
  2. ORPHENADRINE CITRATE [Concomitant]
  3. AUGMENTIN '500' [Concomitant]
  4. METFORMIN HYDROCHLORIDE [Concomitant]
  5. CYCLOPHOSPHAMIDE [Concomitant]
  6. HYDROCODONE [Concomitant]
  7. LORAZEPAM [Concomitant]
  8. GLIPIZIDE [Concomitant]
  9. SERTRALINE HYDROCHLORIDE [Concomitant]
  10. LACTOSE [Concomitant]
  11. NEXIUM [Suspect]
     Indication: GALLBLADDER DISORDER
     Route: 048
  12. NEXIUM [Suspect]
     Indication: HYPERCHLORHYDRIA
     Route: 048
  13. PREDNISONE [Concomitant]
  14. VICTOZA [Concomitant]

REACTIONS (6)
  - THERAPEUTIC RESPONSE UNEXPECTED [None]
  - HIATUS HERNIA [None]
  - VASCULITIS [None]
  - OFF LABEL USE [None]
  - BILIARY TRACT DISORDER [None]
  - SYSTEMIC LUPUS ERYTHEMATOSUS [None]
